FAERS Safety Report 8469665-1 (Version None)
Quarter: 2012Q2

REPORT INFORMATION
  Report Type: 
  Country: None (occurrence: None)
  Receive Date: 20120626
  Receipt Date: 20120618
  Transmission Date: 20120825
  Serious: Yes (Hospitalization, Other)
  Sender: FDA-Public Use
  Company Number: US-BAYER-2012-044313

PATIENT
  Age: 85 Year
  Sex: Male
  Weight: 56.7 kg

DRUGS (3)
  1. ASPIRIN [Suspect]
     Indication: ILL-DEFINED DISORDER
  2. XARELTO [Suspect]
     Indication: CEREBROVASCULAR ACCIDENT PROPHYLAXIS
  3. XARELTO [Suspect]
     Indication: ATRIAL FIBRILLATION
     Dosage: 20 MG, QD
     Route: 048
     Dates: start: 20120329, end: 20120501

REACTIONS (3)
  - SUBDURAL HAEMATOMA [None]
  - FALL [None]
  - HAEMORRHAGE INTRACRANIAL [None]
